FAERS Safety Report 4782992-4 (Version None)
Quarter: 2005Q3

REPORT INFORMATION
  Report Type: 
  Country: None (occurrence: None)
  Receive Date: 20050928
  Receipt Date: 20050928
  Transmission Date: 20060218
  Serious: Yes (Hospitalization)
  Sender: FDA-Public Use
  Company Number: None

PATIENT
  Age: 78 Year
  Sex: Male
  Weight: 56.1 kg

DRUGS (13)
  1. PHENYTOIN [Suspect]
     Indication: CONVULSION PROPHYLAXIS
     Dosage: 100MG THREE TIMES DAILY PO
     Route: 048
     Dates: start: 19980720, end: 20050627
  2. ASPIRIN TAB [Concomitant]
  3. BRIMONIDINE TARTRATE [Concomitant]
  4. CAMPHOR/MENTHOL LOTION [Concomitant]
  5. DONEPEZIL HCL [Concomitant]
  6. DORZOLAMIDE /TIMOLOL [Concomitant]
  7. HEPARIN [Concomitant]
  8. ADALAT CC [Concomitant]
  9. OMEPRAZOLE [Concomitant]
  10. SALSALATE [Concomitant]
  11. SODIUM CHLORIDE [Concomitant]
  12. SULFAMETHOXAZOLE AND TRIMETHOPRIM [Concomitant]
  13. TRAVOPROST [Concomitant]

REACTIONS (9)
  - BLOOD POTASSIUM ABNORMAL [None]
  - BLOOD PRESSURE DIASTOLIC DECREASED [None]
  - BRADYCARDIA [None]
  - DRUG LEVEL BELOW THERAPEUTIC [None]
  - FALL [None]
  - HYPERKALAEMIA [None]
  - LACERATION [None]
  - LETHARGY [None]
  - NODAL ARRHYTHMIA [None]
